FAERS Safety Report 6358691-4 (Version None)
Quarter: 2009Q3

REPORT INFORMATION
  Report Type: 
  Country: None (occurrence: None)
  Receive Date: 20090916
  Receipt Date: 20090615
  Transmission Date: 20100115
  Serious: No
  Sender: FDA-Public Use
  Company Number: US-ABBOTT-09P-163-0580157-00

PATIENT
  Sex: Female
  Weight: 62.652 kg

DRUGS (4)
  1. TRILIPIX [Suspect]
     Indication: BLOOD TRIGLYCERIDES INCREASED
     Route: 048
     Dates: start: 20090423
  2. DIOVAN [Concomitant]
     Indication: HYPERTENSION
  3. BONIVA [Concomitant]
     Indication: OSTEOPENIA
  4. OMEPRAZOLE [Concomitant]
     Indication: GASTROOESOPHAGEAL REFLUX DISEASE

REACTIONS (2)
  - MYALGIA [None]
  - SENSATION OF HEAVINESS [None]
